FAERS Safety Report 10335092 (Version 3)
Quarter: 2015Q3

REPORT INFORMATION
  Report Type: Spontaneous
  Country: NL (occurrence: NL)
  Receive Date: 20140723
  Receipt Date: 20150709
  Transmission Date: 20151125
  Serious: Yes (Death)
  Sender: FDA-Public Use
  Company Number: NL-ACTELION-A-CH2014-102375

PATIENT
  Age: 81 Year
  Sex: Male
  Weight: 66.3 kg

DRUGS (15)
  1. TRACLEER [Suspect]
     Active Substance: BOSENTAN
     Indication: SKIN ULCER
     Dosage: 125 MG, BID
     Route: 048
     Dates: start: 2010
  2. TRACLEER [Suspect]
     Active Substance: BOSENTAN
     Dosage: 62.5 MG, BID
     Route: 048
     Dates: start: 20100705
  3. ALFUZOSINE [Concomitant]
     Active Substance: ALFUZOSIN HYDROCHLORIDE
     Indication: BENIGN PROSTATIC HYPERPLASIA
  4. CITALOPRAM [Concomitant]
     Active Substance: CITALOPRAM HYDROBROMIDE
     Indication: DEPRESSION
  5. PHENPROCOUMON [Concomitant]
     Active Substance: PHENPROCOUMON
     Indication: ARRHYTHMIA
  6. MORPHINE [Concomitant]
     Active Substance: MORPHINE
     Indication: PAIN
  7. BISOPROLOL [Concomitant]
     Active Substance: BISOPROLOL
     Indication: ARRHYTHMIA
  8. NIFEDIPINE. [Concomitant]
     Active Substance: NIFEDIPINE
     Indication: RAYNAUD^S PHENOMENON
  9. MORPHINE [Concomitant]
     Active Substance: MORPHINE
     Indication: DYSPNOEA
  10. DIGOXINE [Concomitant]
     Active Substance: DIGOXIN
     Indication: ARRHYTHMIA
  11. FERRO FUMARAT [Concomitant]
     Indication: ANAEMIA
  12. SIMVASTATIN. [Concomitant]
     Active Substance: SIMVASTATIN
     Indication: HYPERCHOLESTEROLAEMIA
  13. OMEPRAZOL [Concomitant]
     Active Substance: OMEPRAZOLE
     Indication: GASTROOESOPHAGEAL REFLUX DISEASE
  14. PREDNISOLON [Concomitant]
     Active Substance: PREDNISOLONE
     Indication: LUNG DISORDER
  15. SPIRONOLACTON [Concomitant]
     Active Substance: SPIRONOLACTONE
     Indication: CARDIAC FAILURE

REACTIONS (3)
  - Cardiac failure [Fatal]
  - Constipation [Not Recovered/Not Resolved]
  - Respiratory failure [Fatal]

NARRATIVE: CASE EVENT DATE: 20100101
